FAERS Safety Report 7464892-4 (Version None)
Quarter: 2011Q2

REPORT INFORMATION
  Report Type: 
  Country: None (occurrence: None)
  Receive Date: 20110509
  Receipt Date: 20100908
  Transmission Date: 20111010
  Serious: Yes (Hospitalization, Other)
  Sender: FDA-Public Use
  Company Number: US-BAYER-200943909NA

PATIENT
  Age: 18 Year
  Sex: Female
  Weight: 91 kg

DRUGS (3)
  1. ALBUTEROL [Concomitant]
     Indication: ASTHMA
  2. YAZ [Suspect]
     Indication: DYSMENORRHOEA
     Dosage: UNK
     Dates: start: 20090201, end: 20090701
  3. SINGULAIR [Concomitant]
     Indication: ASTHMA
     Dosage: UNK
     Dates: start: 20020101

REACTIONS (5)
  - ABDOMINAL PAIN UPPER [None]
  - CHOLELITHIASIS [None]
  - CHOLECYSTITIS [None]
  - PAIN [None]
  - SCAR [None]
